FAERS Safety Report 10540886 (Version 3)
Quarter: 2014Q4

REPORT INFORMATION
  Report Type: Spontaneous
  Country: US (occurrence: US)
  Receive Date: 20141024
  Receipt Date: 20141118
  Transmission Date: 20150529
  Serious: Yes (Other)
  Sender: FDA-Public Use
  Company Number: US-PFIZER INC-2014285640

PATIENT
  Age: 44 Year
  Sex: Female

DRUGS (3)
  1. ROBITUSSIN PEAK COLD NIGHTTIME MULTI-SYMPTOM COLD [Suspect]
     Active Substance: ACETAMINOPHEN\DIPHENHYDRAMINE HYDROCHLORIDE\PHENYLEPHRINE HYDROCHLORIDE
     Dosage: UNK
     Route: 048
  2. OMEPRAZOLE. [Concomitant]
     Active Substance: OMEPRAZOLE
     Indication: HIATUS HERNIA
     Dosage: 20 OR 25 MG, DAILY
  3. ROBITUSSIN PEAK COLD NIGHTTIME MULTI-SYMPTOM COLD [Suspect]
     Active Substance: ACETAMINOPHEN\DIPHENHYDRAMINE HYDROCHLORIDE\PHENYLEPHRINE HYDROCHLORIDE
     Indication: NASOPHARYNGITIS
     Dosage: TOOK A SWIG
     Route: 048

REACTIONS (8)
  - Dysgeusia [Unknown]
  - Product taste abnormal [Unknown]
  - Accidental poisoning [Unknown]
  - Product odour abnormal [Unknown]
  - Vomiting [Unknown]
  - Malaise [Unknown]
  - Wrong technique in drug usage process [Unknown]
  - Retching [Unknown]
